FAERS Safety Report 6917420-3 (Version None)
Quarter: 2010Q3

REPORT INFORMATION
  Report Type: 
  Country: None (occurrence: None)
  Receive Date: 20100810
  Receipt Date: 20100730
  Transmission Date: 20110219
  Serious: Yes (Other)
  Sender: FDA-Public Use
  Company Number: ES-AMGEN-KDL428227

PATIENT

DRUGS (5)
  1. CINACALCET HYDROCHLORIDE [Suspect]
     Indication: HYPERPARATHYROIDISM SECONDARY
     Dates: start: 20050401, end: 20080401
  2. CINACALCET HYDROCHLORIDE [Suspect]
  3. CALCIUM CARBONATE [Concomitant]
  4. SEVELAMER [Concomitant]
  5. PARICALCITOL [Concomitant]

REACTIONS (1)
  - HYPOCALCAEMIA [None]
